FAERS Safety Report 12959488 (Version 1)
Quarter: 2016Q4

REPORT INFORMATION
  Report Type: Spontaneous
  Country: US (occurrence: US)
  Receive Date: 20161121
  Receipt Date: 20161121
  Transmission Date: 20170207
  Serious: No
  Sender: FDA-Public Use
  Company Number: US-009507513-1610USA012983

PATIENT
  Age: 36 Year
  Sex: Female
  Weight: 72.56 kg

DRUGS (2)
  1. NUVARING [Suspect]
     Active Substance: ETHINYL ESTRADIOL\ETONOGESTREL
     Indication: MENSTRUAL DISORDER
  2. NUVARING [Suspect]
     Active Substance: ETHINYL ESTRADIOL\ETONOGESTREL
     Indication: CONTRACEPTION
     Dosage: UNK, USING CONTINUOUSLY
     Route: 067
     Dates: start: 201604

REACTIONS (4)
  - Device expulsion [Unknown]
  - Off label use of device [Unknown]
  - Incorrect drug administration duration [Unknown]
  - Accidental underdose [Unknown]

NARRATIVE: CASE EVENT DATE: 201604
